FAERS Safety Report 25787086 (Version 1)
Quarter: 2025Q3

REPORT INFORMATION
  Report Type: Report from Study
  Country: CO (occurrence: CO)
  Receive Date: 20250910
  Receipt Date: 20250910
  Transmission Date: 20251020
  Serious: Yes (Disabling)
  Sender: AMGEN
  Company Number: CO-AMGEN-COLSL2025176724

PATIENT
  Age: 87 Year
  Sex: Female

DRUGS (1)
  1. EVENITY [Suspect]
     Active Substance: ROMOSOZUMAB-AQQG
     Indication: Osteoporosis postmenopausal
     Dosage: 210 MILLIGRAM, QMO
     Route: 058
     Dates: start: 20250606

REACTIONS (1)
  - Tooth disorder [Not Recovered/Not Resolved]

NARRATIVE: CASE EVENT DATE: 20250902
